FAERS Safety Report 6955627-X (Version None)
Quarter: 2010Q3

REPORT INFORMATION
  Report Type: 
  Country: None (occurrence: None)
  Receive Date: 20100830
  Receipt Date: 20100820
  Transmission Date: 20110219
  Serious: Yes (Hospitalization, Other)
  Sender: FDA-Public Use
  Company Number: JP-PFIZER INC-2010083212

PATIENT
  Age: 70 Year
  Sex: Male
  Weight: 54.7 kg

DRUGS (6)
  1. AZULFIDINE [Suspect]
     Indication: RHEUMATOID ARTHRITIS
     Dosage: 250 MG, 2X/DAY
     Route: 048
     Dates: start: 20100611, end: 20100625
  2. INDOMETHACIN SODIUM [Concomitant]
     Indication: RHEUMATOID ARTHRITIS
     Dosage: UNK
     Route: 062
     Dates: start: 20100611
  3. TRICHLORMETHIAZIDE [Concomitant]
     Indication: HYPERTENSION
     Dosage: 2 MG, 1X/DAY
     Route: 048
     Dates: end: 20100625
  4. BLOPRESS [Concomitant]
     Indication: HYPERTENSION
     Dosage: 2 MG, 1X/DAY
     Route: 048
     Dates: end: 20100625
  5. AMLODIPINE BESILATE [Concomitant]
     Indication: HYPERTENSION
     Dosage: 2.5 MG, 1X/DAY
     Route: 048
     Dates: end: 20100625
  6. GASTROM [Concomitant]
     Indication: GASTRITIS
     Dosage: 1.5 MG, 2X/DAY
     Route: 048

REACTIONS (4)
  - DEHYDRATION [None]
  - GRANULOCYTOPENIA [None]
  - PNEUMONIA [None]
  - PYREXIA [None]
